FAERS Safety Report 8666398 (Version 4)
Quarter: 2012Q4

REPORT INFORMATION
  Report Type: 
  Country: US (occurrence: US)
  Receive Date: 20120716
  Receipt Date: 20121210
  Transmission Date: 20130627
  Serious: Yes (Hospitalization, Other)
  Sender: FDA-Public Use
  Company Number: US-009507513-2012SP011814

PATIENT

DRUGS (1)
  1. NUVARING [Suspect]
     Indication: CONTRACEPTION
     Dosage: UNK
     Route: 067
     Dates: start: 200901, end: 20100301

REACTIONS (14)
  - Pulmonary embolism [Recovered/Resolved]
  - Myalgia [Unknown]
  - Headache [Unknown]
  - Pharyngitis [Unknown]
  - Pulmonary infarction [Unknown]
  - Synovial cyst [Unknown]
  - Seborrhoeic keratosis [Unknown]
  - Depression [Unknown]
  - Osteopenia [Unknown]
  - Melanocytic naevus [Unknown]
  - Cyst [Unknown]
  - Sinus polyp [Unknown]
  - Bronchitis [Unknown]
  - Vaginitis bacterial [Unknown]
